FAERS Safety Report 25948009 (Version 5)
Quarter: 2025Q4

REPORT INFORMATION
  Report Type: Report from Study
  Country: EU (occurrence: EU)
  Receive Date: 20251022
  Receipt Date: 20251124
  Transmission Date: 20260117
  Serious: Yes (Life-Threatening, Hospitalization, Other)
  Sender: MYLAN
  Company Number: EU-MYLANLABS-2025M1089205

PATIENT
  Age: 58 Year
  Sex: Female

DRUGS (29)
  1. CLOZAPINE [Suspect]
     Active Substance: CLOZAPINE
     Indication: Schizophrenia
     Dosage: 700 MILLIGRAM, QD
     Dates: start: 20250911, end: 202509
  2. MAGNESIUM HYDROXIDE [Suspect]
     Active Substance: MAGNESIUM HYDROXIDE
     Indication: Product used for unknown indication
     Dosage: 250 MILLIGRAM, PRN (ONCE A DAY)
  3. ALENDRONATE SODIUM [Suspect]
     Active Substance: ALENDRONATE SODIUM
     Indication: Product used for unknown indication
     Dosage: 70 MILLIGRAM, QW (ONCE A WEEK)
  4. OLANZAPINE [Concomitant]
     Active Substance: OLANZAPINE
     Indication: Product used for unknown indication
     Dosage: 15 MILLIGRAM, BID
     Dates: start: 20250912, end: 2025
  5. OLANZAPINE [Concomitant]
     Active Substance: OLANZAPINE
     Dosage: UNK, BID (10MG + 20MG )
     Dates: start: 2025
  6. OLANZAPINE [Concomitant]
     Active Substance: OLANZAPINE
     Dosage: UNK
  7. SODIUM PICOSULFATE [Concomitant]
     Active Substance: SODIUM PICOSULFATE
     Dosage: 10 GTT DROPS, QD (ONCE DAILY)
     Dates: end: 2025
  8. POLYETHYLENE GLYCOL 4000 [Concomitant]
     Active Substance: POLYETHYLENE GLYCOL 4000
     Dosage: 12 GRAM, PRN (ONE TO THREE TIMES PER DAY)
  9. POLYETHYLENE GLYCOL 4000 [Concomitant]
     Active Substance: POLYETHYLENE GLYCOL 4000
     Dosage: 24 GRAM, BID
  10. VAGIFEM [Concomitant]
     Active Substance: ESTRADIOL
     Dosage: UNK, BIWEEKLY (TUESDAYS AND THURSDAYS [TWICE A WEEK]
  11. VAGIFEM [Concomitant]
     Active Substance: ESTRADIOL
     Dosage: 10 MICROGRAM (AS PER SEPARATE INSTRUCTIONS)
  12. Panadol forte [Concomitant]
     Dosage: 1 GRAM, TID
  13. VALPROIC ACID [Concomitant]
     Active Substance: VALPROIC ACID
     Dosage: UNK, BID (DAILY DOSE AS 500MG AND 1000MG
  14. VALPROIC ACID [Concomitant]
     Active Substance: VALPROIC ACID
     Dosage: 500 MILLIGRAM, BID
  15. SEROQUEL [Concomitant]
     Active Substance: QUETIAPINE FUMARATE
     Dosage: UNK, BID (800+0+400 MG)
     Dates: end: 2025
  16. DIAZEPAM [Concomitant]
     Active Substance: DIAZEPAM
     Dosage: 5 MILLIGRAM, BID
     Dates: end: 2025
  17. MIRTAZAPINE [Concomitant]
     Active Substance: MIRTAZAPINE
     Dosage: 15 MILLIGRAM, QD
     Dates: end: 2025
  18. ATROVENT [Concomitant]
     Active Substance: IPRATROPIUM BROMIDE
     Dosage: 42 MICROGRAM, TID
     Dates: end: 2025
  19. CHOLECALCIFEROL [Concomitant]
     Active Substance: CHOLECALCIFEROL
     Dosage: 20 MICROGRAM, AM (300 CHEWABLE TABLET 20MICROG IN THE MORNING)
  20. CALCIUM CARBONATE [Concomitant]
     Active Substance: CALCIUM CARBONATE
     Dosage: 500 MILLIGRAM, BID (TWICE A DAY)
  21. FUROSEMIDE [Concomitant]
     Active Substance: FUROSEMIDE
     Dosage: 20 MILLIGRAM, PRN
  22. FUROSEMIDE [Concomitant]
     Active Substance: FUROSEMIDE
     Dosage: 1 DOSAGE FORM, QD (ONCE A DAY)
  23. QUETIAPINE FUMARATE [Concomitant]
     Active Substance: QUETIAPINE FUMARATE
     Dosage: UNK, BID ( 200MG + 600MG)
  24. NICOTINELL [Concomitant]
     Active Substance: NICOTINE
     Dosage: 210 MILLIGRAM, QD (ONCE A DAY)
  25. PANTOPRAZOLE SODIUM [Concomitant]
     Active Substance: PANTOPRAZOLE SODIUM
     Dosage: 20 MILLIGRAM, PRN ((ONCE A DAY)
  26. IBUPROFEN [Concomitant]
     Active Substance: IBUPROFEN
     Dosage: 600 MILLIGRAM, PRN (1 TO 3 TIMES A DAY)
  27. DICLOFENAC SODIUM [Concomitant]
     Active Substance: DICLOFENAC SODIUM
     Dosage: 23.2 MILLIGRAM PER GRAM, PRN (AS PER SEPARATE INSTRUCTIONS)
  28. Temesta [Concomitant]
     Dosage: 1 MILLIGRAM, PRN (ONCE A DAY)
  29. Tenox [Concomitant]
     Dosage: 20 MILLIGRAM, PRN (ONCE A DAY)

REACTIONS (11)
  - Agranulocytosis [Recovered/Resolved]
  - B-cell lymphoma [Not Recovered/Not Resolved]
  - Mental impairment [Not Recovered/Not Resolved]
  - Neutropenia [Recovered/Resolved]
  - White blood cell count decreased [Recovered/Resolved]
  - Influenza like illness [Recovered/Resolved]
  - Granulocyte count decreased [Recovered/Resolved]
  - White blood cell count increased [Recovered/Resolved]
  - Neutrophil count increased [Recovered/Resolved]
  - Nasopharyngitis [Recovered/Resolved]
  - Off label use [Recovered/Resolved]

NARRATIVE: CASE EVENT DATE: 20250901
